FAERS Safety Report 8581913-6 (Version None)
Quarter: 2012Q3

REPORT INFORMATION
  Report Type: 
  Country: None (occurrence: None)
  Receive Date: 20120809
  Receipt Date: 20120730
  Transmission Date: 20120928
  Serious: Yes (Other)
  Sender: FDA-Public Use
  Company Number: AU-ASTRAZENECA-2012SE55397

PATIENT
  Age: 1 Month
  Sex: Female

DRUGS (4)
  1. PREVENAR 13 [Suspect]
     Indication: IMMUNISATION
     Dosage: ONE DOSE UNPECIFIED ONE TIME
     Route: 048
     Dates: start: 20110829, end: 20110829
  2. INFANTRIX HEXA [Concomitant]
     Indication: IMMUNISATION
     Dosage: ONE DOSE UNSPCIFIED ONE TIME
     Route: 030
     Dates: start: 20110829, end: 20110829
  3. ROTATEQ [Suspect]
     Indication: IMMUNISATION
     Dosage: ONE DOSE UNSPECIFIED ONE TIME
     Route: 065
     Dates: start: 20110829, end: 20110829
  4. SYNAGIS [Suspect]
     Indication: IMMUNISATION
     Dosage: ONE DOSE UNPECIFIED ONE TIME
     Route: 030
     Dates: start: 20110829, end: 20110829

REACTIONS (5)
  - RESPIRATORY DISTRESS [None]
  - PYREXIA [None]
  - RESTLESSNESS [None]
  - NASOPHARYNGITIS [None]
  - NASAL CONGESTION [None]
